FAERS Safety Report 6958805-9 (Version None)
Quarter: 2010Q3

REPORT INFORMATION
  Report Type: 
  Country: None (occurrence: None)
  Receive Date: 20100831
  Receipt Date: 20100824
  Transmission Date: 20110219
  Serious: Yes (Hospitalization)
  Sender: FDA-Public Use
  Company Number: PHHO2010NL12961

PATIENT
  Sex: Male
  Weight: 86 kg

DRUGS (13)
  1. AFINITOR [Suspect]
     Indication: RENAL CELL CARCINOMA
     Dosage: 10 MG
     Route: 048
     Dates: start: 20100427, end: 20100712
  2. AFINITOR [Suspect]
     Dosage: NO TREATMENT
     Dates: start: 20100713, end: 20100726
  3. AFINITOR [Suspect]
     Dosage: 5 MG
     Route: 048
     Dates: start: 20100727, end: 20100731
  4. AVASTIN [Suspect]
  5. FENTANYL CITRATE [Concomitant]
  6. PRAVASTATIN [Concomitant]
  7. METOPROLOL TARTRATE [Concomitant]
  8. FUROSEMIDE [Concomitant]
  9. ACETYLCYSTEINE [Concomitant]
  10. LOPERAMIDE [Concomitant]
  11. ERYTHROMYCIN [Concomitant]
  12. ACETAMINOPHEN [Concomitant]
  13. DAKTARIN [Concomitant]

REACTIONS (6)
  - DECREASED APPETITE [None]
  - FATIGUE [None]
  - LEUKOCYTOCLASTIC VASCULITIS [None]
  - NAUSEA [None]
  - OEDEMA PERIPHERAL [None]
  - PETECHIAE [None]
